FAERS Safety Report 8571565-3 (Version None)
Quarter: 2012Q3

REPORT INFORMATION
  Report Type: 
  Country: None (occurrence: None)
  Receive Date: 20120806
  Receipt Date: 20120731
  Transmission Date: 20120928
  Serious: Yes (Hospitalization, Other)
  Sender: FDA-Public Use
  Company Number: PHFR2012GB003774

PATIENT
  Sex: Male

DRUGS (6)
  1. CLOZARIL [Suspect]
     Indication: SCHIZOPHRENIA
     Dosage: 350 MG, QD
     Route: 048
     Dates: start: 20120620
  2. FERROUS SULFATE TAB [Concomitant]
     Indication: ANAEMIA
     Dosage: 200 MG, TID
     Route: 048
  3. CLOZARIL [Suspect]
     Dosage: 12.5 MG, EVERY 2 DAYS
  4. LISINOPRIL [Concomitant]
     Indication: HYPERTENSION
     Dosage: 15 MG, QD
     Route: 048
  5. CITALOPRAM HYDROBROMIDE [Concomitant]
     Indication: DEPRESSION
     Dosage: 40 MG, QD
     Route: 048
  6. LITHIUM CARBONATE [Concomitant]

REACTIONS (7)
  - RENAL IMPAIRMENT [None]
  - NEUTROPHIL COUNT INCREASED [None]
  - WHITE BLOOD CELL COUNT INCREASED [None]
  - HAEMOGLOBIN DECREASED [None]
  - BLOOD SODIUM DECREASED [None]
  - RED BLOOD CELL COUNT DECREASED [None]
  - CIRCULATORY COLLAPSE [None]
